FAERS Safety Report 16470837 (Version 1)
Quarter: 2019Q2

REPORT INFORMATION
  Report Type: Spontaneous
  Country: CA (occurrence: CA)
  Receive Date: 20190624
  Receipt Date: 20190624
  Transmission Date: 20190711
  Serious: Yes (Death, Hospitalization)
  Sender: FDA-Public Use
  Company Number: CA-TEVA-2019-CA-1067089

PATIENT
  Age: 72 Year
  Sex: Female
  Weight: 55 kg

DRUGS (22)
  1. AMIODARONE [Concomitant]
     Active Substance: AMIODARONE
  2. AZITHROMYCIN ANHYDROUS. [Concomitant]
     Active Substance: AZITHROMYCIN ANHYDROUS
  3. ASA [Concomitant]
     Active Substance: ASPIRIN
  4. PANTOPRAZOLE [Concomitant]
     Active Substance: PANTOPRAZOLE
  5. SERAX [OXAZEPAM] [Concomitant]
  6. SYNTHROID [Concomitant]
     Active Substance: LEVOTHYROXINE SODIUM
  7. CRESTOR [Concomitant]
     Active Substance: ROSUVASTATIN CALCIUM
  8. FLOVENT HFA [Concomitant]
     Active Substance: FLUTICASONE PROPIONATE
  9. METOPROLOL. [Concomitant]
     Active Substance: METOPROLOL
  10. AMIODARONE HYDROCHLORIDE. [Suspect]
     Active Substance: AMIODARONE HYDROCHLORIDE
     Indication: ATRIAL FIBRILLATION
     Dosage: 200 MILLIGRAM DAILY;
     Route: 048
  11. APO-ACETAMINOPHEN [Concomitant]
     Active Substance: ACETAMINOPHEN
  12. CIPRO [Concomitant]
     Active Substance: CIPROFLOXACIN HYDROCHLORIDE
  13. COVERSYL [PERINDOPRIL ARGININE] [Concomitant]
     Active Substance: PERINDOPRIL ARGININE
  14. FUROSEMIDE. [Concomitant]
     Active Substance: FUROSEMIDE
  15. CARBOCAL [Concomitant]
     Active Substance: CALCIUM CARBONATE
  16. NASONEX [Concomitant]
     Active Substance: MOMETASONE FUROATE
  17. NITROLINGUAL [Concomitant]
     Active Substance: NITROGLYCERIN
  18. RISEDRONATE SODIUM. [Concomitant]
     Active Substance: RISEDRONATE SODIUM
  19. VENTOLIN [Concomitant]
     Active Substance: ALBUTEROL SULFATE
  20. VITAMIN B12 [Concomitant]
     Active Substance: CYANOCOBALAMIN
  21. ELIQUIS [Concomitant]
     Active Substance: APIXABAN
  22. PMS ISMN [Concomitant]

REACTIONS (2)
  - Lung infiltration [Fatal]
  - Pneumonitis [Fatal]
